FAERS Safety Report 8684151 (Version 5)
Quarter: 2013Q1

REPORT INFORMATION
  Report Type: Spontaneous
  Country: US (occurrence: US)
  Receive Date: 20120726
  Receipt Date: 20130211
  Transmission Date: 20140127
  Serious: Yes (Hospitalization)
  Sender: FDA-Public Use
  Company Number: US-JNJFOC-20120708948

PATIENT
  Age: 66 Year
  Sex: Female
  Weight: 87.5 kg

DRUGS (17)
  1. IBUPROFEN [Suspect]
     Route: 048
  2. IBUPROFEN [Suspect]
     Indication: ARTHRALGIA
     Route: 048
     Dates: start: 20120418
  3. PLACEBO [Suspect]
     Indication: DEMENTIA ALZHEIMER^S TYPE
     Dosage: BLINDED THERAPY
     Route: 051
     Dates: start: 20110810, end: 20110810
  4. ALEVE [Suspect]
     Indication: BACK PAIN
     Route: 048
     Dates: start: 20120215
  5. BAPINEUZUMAB [Suspect]
     Indication: DEMENTIA ALZHEIMER^S TYPE
     Dosage: BLINDED THERAPY
     Route: 051
     Dates: start: 20110810, end: 20110810
  6. BAPINEUZUMAB [Suspect]
     Indication: DEMENTIA ALZHEIMER^S TYPE
     Route: 051
     Dates: start: 20111108, end: 20111108
  7. BAPINEUZUMAB [Suspect]
     Indication: DEMENTIA ALZHEIMER^S TYPE
     Route: 051
     Dates: start: 20120508, end: 20120508
  8. BAPINEUZUMAB [Suspect]
     Indication: DEMENTIA ALZHEIMER^S TYPE
     Route: 051
     Dates: start: 20120207, end: 20120207
  9. OMEGA 3 [Concomitant]
     Indication: SUPPLEMENTATION THERAPY
     Route: 048
     Dates: start: 20091223
  10. LYRICA [Concomitant]
     Indication: PAIN
     Route: 048
     Dates: start: 20120117
  11. VITAMIN D3 [Concomitant]
     Indication: SUPPLEMENTATION THERAPY
     Route: 048
     Dates: start: 20100708
  12. ARICEPT [Concomitant]
     Indication: DEMENTIA ALZHEIMER^S TYPE
     Route: 048
     Dates: start: 201103
  13. LISINOPRIL [Concomitant]
     Indication: HYPERTENSION
     Dosage: 20/12.5 MG
     Route: 048
     Dates: start: 20001208
  14. SERTRALINE HYDROCHLORIDE [Concomitant]
     Indication: ANXIETY
     Route: 048
     Dates: start: 20110520
  15. LEVOTHYROXINE SODIUM [Concomitant]
     Indication: THYROID DISORDER
     Route: 048
     Dates: start: 20110810
  16. NAMENDA [Concomitant]
     Indication: DEMENTIA ALZHEIMER^S TYPE
     Route: 048
     Dates: start: 201011
  17. HYDROXYCHLOROQUINE SULFATE [Concomitant]
     Indication: ARTHRITIS
     Route: 048
     Dates: start: 20100708

REACTIONS (2)
  - Gastrointestinal haemorrhage [Recovered/Resolved]
  - Gastrointestinal ulcer [Recovered/Resolved]
